FAERS Safety Report 5334466-X (Version None)
Quarter: 2007Q2

REPORT INFORMATION
  Report Type: 
  Country: None (occurrence: None)
  Receive Date: 20070522
  Receipt Date: 20070511
  Transmission Date: 20071010
  Serious: Yes (Hospitalization)
  Sender: FDA-Public Use
  Company Number: 2007-01289

PATIENT
  Age: 52 Year
  Sex: Male

DRUGS (42)
  1. VELCADE [Suspect]
     Indication: MULTIPLE MYELOMA
     Dates: start: 20060308
  2. VELCADE [Suspect]
     Indication: MULTIPLE MYELOMA
     Dates: start: 20060420
  3. DEXAMETHASONE [Suspect]
     Indication: MULTIPLE MYELOMA
     Dosage: SEE IMAGE
     Dates: start: 20060925, end: 20060926
  4. DEXAMETHASONE [Suspect]
     Indication: MULTIPLE MYELOMA
     Dosage: SEE IMAGE
     Dates: start: 20061105, end: 20061108
  5. DEXAMETHASONE [Suspect]
     Indication: MULTIPLE MYELOMA
     Dosage: SEE IMAGE
     Dates: start: 20061109, end: 20061110
  6. DEXAMETHASONE [Suspect]
     Indication: MULTIPLE MYELOMA
     Dosage: SEE IMAGE
     Dates: start: 20060308
  7. DEXAMETHASONE [Suspect]
     Indication: MULTIPLE MYELOMA
     Dosage: SEE IMAGE
     Dates: start: 20060420
  8. CISPLATIN [Suspect]
     Indication: MULTIPLE MYELOMA
     Dates: start: 20060308
  9. CISPLATIN [Suspect]
     Indication: MULTIPLE MYELOMA
     Dates: start: 20060420
  10. DOXORUBICIN HCL [Suspect]
     Indication: MULTIPLE MYELOMA
     Dates: start: 20060308
  11. DOXORUBICIN HCL [Suspect]
     Indication: MULTIPLE MYELOMA
     Dates: start: 20060420
  12. CYCLOPHOSPHAMIDE [Suspect]
     Indication: MULTIPLE MYELOMA
     Dates: start: 20060308
  13. CYCLOPHOSPHAMIDE [Suspect]
     Indication: MULTIPLE MYELOMA
     Dates: start: 20060420
  14. ETOPOSIDE [Suspect]
     Indication: MULTIPLE MYELOMA
     Dates: start: 20060308
  15. ETOPOSIDE [Suspect]
     Indication: MULTIPLE MYELOMA
     Dates: start: 20060420
  16. THALIDOMIDE [Suspect]
     Indication: MULTIPLE MYELOMA
     Dates: start: 20060308
  17. THALIDOMIDE [Suspect]
     Indication: MULTIPLE MYELOMA
     Dates: start: 20060420
  18. MELPHALAN(MELPHALAN) VIAL [Suspect]
     Indication: MULTIPLE MYELOMA
     Dosage: 200.00 MG/M2
     Dates: end: 20060925
  19. MELPHALAN(MELPHALAN) VIAL [Suspect]
     Indication: MULTIPLE MYELOMA
     Dosage: 200.00 MG/M2
     Dates: start: 20060607
  20. METRONIDAZOLE [Concomitant]
  21. FLUCONAZOLE [Concomitant]
  22. INVANZ (ERTAPENEM SODIUM) [Concomitant]
  23. ARANESP [Concomitant]
  24. ACYCLOVIR [Concomitant]
  25. VITAMIN B12 [Concomitant]
  26. MULTIVITAMINS (ERGOCALCIFEROL, PANTHENOL, NICOTINAMIDE, RIBOFLAVIN, TH [Concomitant]
  27. DOCUSATE SODIUM (DOCUSATE SODIUM) [Concomitant]
  28. LORAZEPAM [Concomitant]
  29. PROCTOFOAM (PRAMOCAINE HYDROCHLORIDE) [Concomitant]
  30. FOLIC ACID [Concomitant]
  31. RANITIDINE HYDROCHLORIDE [Concomitant]
  32. LACTULOSE [Concomitant]
  33. POTASSIUM CHLORIDE [Concomitant]
  34. NYSTATIN [Concomitant]
  35. EMEND [Concomitant]
  36. REGLAN [Concomitant]
  37. BENADRYL (SODIUM CITRATE, AMMONIUM CHLORIDE, MENTHOL, DIPHENHYDRAMINE [Concomitant]
  38. ZOFRAN [Concomitant]
  39. BACLOFEN [Concomitant]
  40. VANCOMYCIN [Concomitant]
  41. PRIMAXIN [Concomitant]
  42. VORICONAZOLE (VORICONAZOLE) [Concomitant]

REACTIONS (10)
  - ABSCESS [None]
  - COLITIS [None]
  - FEBRILE NEUTROPENIA [None]
  - FLUID OVERLOAD [None]
  - HYPOXIA [None]
  - INFECTION [None]
  - PAROTID GLAND ENLARGEMENT [None]
  - PERICARDIAL EFFUSION [None]
  - PLEURAL EFFUSION [None]
  - PNEUMONIA [None]
